FAERS Safety Report 12412253 (Version 2)
Quarter: 2016Q2

REPORT INFORMATION
  Report Type: Report from Study
  Country: US (occurrence: US)
  Receive Date: 20160527
  Receipt Date: 20160614
  Transmission Date: 20160815
  Serious: Yes (Other)
  Sender: FDA-Public Use
  Company Number: US-MALLINCKRODT-T201601932

PATIENT
  Sex: Female

DRUGS (1)
  1. REPOSITORY CORTICOTROPIN INJECTION [Suspect]
     Active Substance: CORTICOTROPIN
     Indication: GLOMERULONEPHRITIS MINIMAL LESION
     Dosage: 80 UNITS TWICE A WEEK (WED + SAT)
     Route: 058
     Dates: start: 20160309

REACTIONS (2)
  - Haemorrhoids [Not Recovered/Not Resolved]
  - Hernia [Not Recovered/Not Resolved]
